FAERS Safety Report 9072282 (Version 1)
Quarter: 2013Q1

REPORT INFORMATION
  Report Type: Spontaneous
  Country: US (occurrence: US)
  Receive Date: 20130206
  Receipt Date: 20130206
  Transmission Date: 20140127
  Serious: No
  Sender: FDA-Public Use
  Company Number: US-ALLERGAN-1217298US

PATIENT
  Age: 69 Year
  Sex: Female

DRUGS (4)
  1. RESTASIS? [Suspect]
     Indication: DRY EYE
     Dosage: 2 GTT, QID
     Route: 047
     Dates: start: 2012, end: 201206
  2. RESTASIS? [Suspect]
     Dosage: 2 GTT, BID
     Route: 047
     Dates: start: 2012, end: 2012
  3. SYNTHROID [Concomitant]
     Indication: BASEDOW^S DISEASE
     Dosage: 137 ?G, QD
     Route: 048
  4. CHOLESTEROL MEDICAION NOS [Concomitant]
     Indication: BLOOD CHOLESTEROL INCREASED
     Dosage: 12.5 MG, UNK
     Route: 048

REACTIONS (3)
  - Conjunctival haemorrhage [Recovering/Resolving]
  - Scleral disorder [Recovered/Resolved]
  - Inappropriate schedule of drug administration [Unknown]
